FAERS Safety Report 5664316-3 (Version None)
Quarter: 2008Q1

REPORT INFORMATION
  Report Type: 
  Country: None (occurrence: None)
  Receive Date: 20080312
  Receipt Date: 20080304
  Transmission Date: 20080703
  Serious: Yes (Life-Threatening, Hospitalization, Other)
  Sender: FDA-Public Use
  Company Number: 2008US000668

PATIENT
  Age: 27 Year
  Sex: Female
  Weight: 49.9 kg

DRUGS (5)
  1. PROGRAF [Suspect]
     Indication: RENAL TRANSPLANT
     Dosage: ORAL; 5 MG, OTHER, ORAL
     Route: 048
     Dates: start: 20010101
  2. PREDNISOLONE ACETATE [Concomitant]
  3. CELLCEPT [Concomitant]
  4. ALLESE [Concomitant]
  5. COZAAR [Concomitant]

REACTIONS (3)
  - COMPLICATIONS OF TRANSPLANT SURGERY [None]
  - FEELING ABNORMAL [None]
  - KIDNEY TRANSPLANT REJECTION [None]
